FAERS Safety Report 17507532 (Version 1)
Quarter: 2020Q1

REPORT INFORMATION
  Report Type: Spontaneous
  Country: DE (occurrence: DE)
  Receive Date: 20200306
  Receipt Date: 20200306
  Transmission Date: 20200409
  Serious: Yes (Life-Threatening, Hospitalization)
  Sender: FDA-Public Use
  Company Number: DE-TEVA-2020-DE-1194978

PATIENT
  Age: 44 Year
  Sex: Male
  Weight: 73 kg

DRUGS (8)
  1. AKINETON [Concomitant]
     Active Substance: BIPERIDEN HYDROCHLORIDE
  2. RIBAVIRIN. [Suspect]
     Active Substance: RIBAVIRIN
     Indication: CHRONIC HEPATITIS C
     Dosage: 800 MG
     Route: 048
     Dates: start: 200407, end: 20040928
  3. NEUROCIL [Concomitant]
  4. TAVOR [Concomitant]
  5. METHADONE HYDROCHLORIDE. [Suspect]
     Active Substance: METHADONE HYDROCHLORIDE
     Indication: DRUG DEPENDENCE
     Dosage: STATED THAT PATIENT RECEIVED 6.5 ML (2 ML MORE THAN PLANNED). 50MG
     Route: 048
     Dates: end: 20040929
  6. THYROXINE [Suspect]
     Active Substance: LEVOTHYROXINE
     Indication: GOITRE
     Dosage: 75 MICROGRAM
     Route: 048
     Dates: end: 20040929
  7. PEGASYS [Suspect]
     Active Substance: PEGINTERFERON ALFA-2A
     Indication: CHRONIC HEPATITIS C
     Dosage: 780 MICROGRAM
     Route: 058
     Dates: start: 200407, end: 20040928
  8. HALDOL [Concomitant]
     Active Substance: HALOPERIDOL
     Dosage: HALDOL THERAPY AMENDED TO 30 MG, UNSPECIFIED FREQUENCY,WHILE PATIENT WAS HOSPITALISED.

REACTIONS (5)
  - Psychotic disorder [Recovered/Resolved]
  - Body temperature increased [Recovered/Resolved]
  - Pancytopenia [Unknown]
  - Delirium [Recovered/Resolved]
  - Blood pressure decreased [Recovered/Resolved]

NARRATIVE: CASE EVENT DATE: 20040929
